FAERS Safety Report 7985923-9 (Version None)
Quarter: 2011Q4

REPORT INFORMATION
  Report Type: 
  Country: None (occurrence: None)
  Receive Date: 20111216
  Receipt Date: 20111214
  Transmission Date: 20120403
  Serious: No
  Sender: FDA-Public Use
  Company Number: US-TEVA-313719USA

PATIENT
  Sex: Female
  Weight: 62.198 kg

DRUGS (4)
  1. METHADONE HCL [Concomitant]
     Indication: DRUG DEPENDENCE
     Dosage: 80 MILLIGRAM;
     Route: 048
     Dates: start: 20060101
  2. PLAN B ONE-STEP [Suspect]
     Indication: POST COITAL CONTRACEPTION
     Dosage: 1.5 MILLIGRAM;
     Route: 048
     Dates: start: 20111213, end: 20111213
  3. ORTHO TRI-CYCLEN LO [Concomitant]
     Indication: CONTRACEPTION
  4. LANSOPRAZOLE [Concomitant]
     Indication: GASTROOESOPHAGEAL REFLUX DISEASE
     Dosage: 30 MILLIGRAM;
     Route: 048

REACTIONS (4)
  - CHEST DISCOMFORT [None]
  - DIARRHOEA [None]
  - ABDOMINAL PAIN [None]
  - ANXIETY [None]
